FAERS Safety Report 7436066-4 (Version None)
Quarter: 2011Q2

REPORT INFORMATION
  Report Type: 
  Country: None (occurrence: None)
  Receive Date: 20110425
  Receipt Date: 20110421
  Transmission Date: 20111010
  Serious: Yes (Hospitalization)
  Sender: FDA-Public Use
  Company Number: NL-ABBOTT-11P-114-0721180-00

PATIENT
  Sex: Male
  Weight: 90 kg

DRUGS (4)
  1. BICALUTAMIDE [Concomitant]
     Indication: PROSTATE CANCER
     Route: 048
  2. LUCRIN DEPOT 30 MG [Suspect]
     Indication: PROSTATE CANCER
     Route: 058
     Dates: start: 20100514
  3. ACETAMINOPHEN [Concomitant]
     Indication: BACK PAIN
     Route: 048
  4. LUCRIN DEPOT 11.25 MG [Suspect]
     Indication: PROSTATE CANCER
     Dates: start: 20070501, end: 20100201

REACTIONS (3)
  - INJECTION SITE PAIN [None]
  - MALAISE [None]
  - MYOCARDIAL INFARCTION [None]
